FAERS Safety Report 6524724-5 (Version None)
Quarter: 2010Q1

REPORT INFORMATION
  Report Type: 
  Country: None (occurrence: None)
  Receive Date: 20100104
  Receipt Date: 20091224
  Transmission Date: 20100710
  Serious: Yes (Other)
  Sender: FDA-Public Use
  Company Number: JP-JNJFOC-20091102251

PATIENT
  Sex: Male
  Weight: 42 kg

DRUGS (27)
  1. RISPERDAL [Suspect]
     Indication: RESTLESSNESS
     Route: 048
  2. RISPERDAL [Suspect]
     Dosage: (ON AN AS NEEDED BASIS)
     Route: 048
  3. RISPERDAL [Suspect]
     Route: 048
  4. RISPERDAL [Suspect]
     Route: 048
  5. RISPERDAL [Suspect]
     Dosage: DOSAGE: RISPERIDONE TABLET 1 MG/DAY ! ON AN AS NEEDED BASIS          (ON AN AS NEEDED BASIS )
     Route: 048
  6. RISPERDAL [Suspect]
     Route: 048
  7. RISPERDAL [Suspect]
     Route: 048
  8. RISPERDAL [Suspect]
     Indication: AGITATION
     Route: 048
  9. RISPERDAL [Suspect]
     Route: 048
  10. RISPERDAL [Suspect]
     Route: 048
  11. RISPERDAL [Suspect]
     Route: 048
  12. RISPERDAL [Suspect]
     Dosage: DOSAGE: RISPERIDONE TABLET 1 MG/DAY ! ON AN AS NEEDED BASIS          (ON AN AS NEEDED BASIS )
     Route: 048
  13. RISPERDAL [Suspect]
     Route: 048
  14. RISPERDAL [Suspect]
     Dosage: (ON AN AS NEEDED BASIS)
     Route: 048
  15. FENTANYL-100 [Suspect]
     Indication: GENERAL ANAESTHESIA
     Route: 065
  16. FENTANYL-100 [Suspect]
     Indication: POSTOPERATIVE ANALGESIA
     Route: 042
  17. VECURONIUM BROMIDE [Suspect]
     Indication: ANAESTHESIA
     Route: 065
  18. PROPOFOL [Suspect]
     Indication: ANAESTHESIA
     Route: 065
  19. REMIFENTANIL HYDROCHLORIDE [Suspect]
     Indication: ANAESTHESIA
     Dosage: ( 0.3- 0.35 MCG/KG/MIN)
     Route: 042
  20. SEVOFLURANE [Suspect]
     Indication: ANAESTHESIA
     Route: 065
  21. AOS (ANAESTHETIC) [Suspect]
     Indication: ANAESTHESIA
     Route: 065
  22. ATROPINE [Concomitant]
     Indication: ANAESTHESIA REVERSAL
     Route: 065
  23. NEOSTIGMIN [Concomitant]
     Indication: ANAESTHESIA REVERSAL
     Route: 065
  24. ODRIK [Concomitant]
     Indication: HYPERTENSION
     Route: 048
  25. PURSENNID [Concomitant]
     Indication: CONSTIPATION
     Route: 048
  26. EPHEDRIN [Concomitant]
     Route: 065
  27. ARICEPT [Concomitant]
     Indication: DEMENTIA ALZHEIMER'S TYPE
     Route: 048

REACTIONS (4)
  - DELAYED RECOVERY FROM ANAESTHESIA [None]
  - DEPRESSED LEVEL OF CONSCIOUSNESS [None]
  - OFF LABEL USE [None]
  - SEDATION [None]
